FAERS Safety Report 5815991-1 (Version None)
Quarter: 2008Q3

REPORT INFORMATION
  Report Type: 
  Country: None (occurrence: None)
  Receive Date: 20080721
  Receipt Date: 20080710
  Transmission Date: 20090109
  Serious: Yes (Hospitalization, Other)
  Sender: FDA-Public Use
  Company Number: PHHY2008BR07862

PATIENT
  Age: 16 Year
  Sex: Male
  Weight: 39.5 kg

DRUGS (2)
  1. DESFERAL [Suspect]
     Indication: THALASSAEMIA BETA
     Dosage: 5 FLASKS/DAY
     Route: 058
  2. FERRIPROX [Concomitant]
     Dosage: 7 TABS A DAY
     Route: 048

REACTIONS (3)
  - HEPATITIS INFECTIOUS [None]
  - NUCLEAR MAGNETIC RESONANCE IMAGING ABNORMAL [None]
  - TRANSAMINASES ABNORMAL [None]
